FAERS Safety Report 4333201-1 (Version None)
Quarter: 2004Q1

REPORT INFORMATION
  Report Type: 
  Country: None (occurrence: None)
  Receive Date: 20040330
  Receipt Date: 20040323
  Transmission Date: 20041129
  Serious: Yes (Hospitalization)
  Sender: FDA-Public Use
  Company Number: MK200403-0221-1

PATIENT
  Sex: Female

DRUGS (13)
  1. ANFRANIL 75MG CAPSULES 100 [Suspect]
     Dosage: 75MG TRANSPLACENTAL
     Route: 064
     Dates: end: 20031014
  2. XANAX [Suspect]
     Route: 064
     Dates: end: 20031014
  3. LORAZEPAM [Suspect]
     Route: 064
     Dates: end: 20031014
  4. TRANXENE [Suspect]
     Route: 064
     Dates: end: 20031014
  5. SORBITOL [Concomitant]
  6. ACETAMINOPHEN [Concomitant]
  7. KETOPROFEN [Concomitant]
  8. TRIFULCAN [Concomitant]
  9. DUPHALAC [Concomitant]
  10. PRIMPERAN INJ [Concomitant]
  11. MYOLASTAN [Concomitant]
  12. MORPHINE [Concomitant]
  13. OMEPRAZOLE [Concomitant]

REACTIONS (21)
  - ANORECTAL AGENESIS [None]
  - CAESAREAN SECTION [None]
  - CONGENITAL GASTRIC ANOMALY [None]
  - CRYING [None]
  - DRUG WITHDRAWAL SYNDROME NEONATAL [None]
  - EATING DISORDER [None]
  - FEEDING PROBLEM IN NEWBORN [None]
  - HYPOTONIA NEONATAL [None]
  - IRRITABILITY [None]
  - LARYNGOMALACIA [None]
  - LEUKOPENIA [None]
  - MATERNAL DRUGS AFFECTING FOETUS [None]
  - MICROCEPHALY [None]
  - MONOCYTOSIS [None]
  - NERVOUS SYSTEM DISORDER [None]
  - OESOPHAGITIS [None]
  - ORAL DISCOMFORT [None]
  - POLYHYDRAMNIOS [None]
  - POOR SUCKING REFLEX [None]
  - STRIDOR [None]
  - TACHYPNOEA [None]
